FAERS Safety Report 10875168 (Version 1)
Quarter: 2015Q1

REPORT INFORMATION
  Report Type: Report from Study
  Country: BR (occurrence: BR)
  Receive Date: 20150227
  Receipt Date: 20150227
  Transmission Date: 20150721
  Serious: Yes (Other)
  Sender: FDA-Public Use
  Company Number: PHHY2015BR023802

PATIENT
  Sex: Male
  Weight: 27.8 kg

DRUGS (1)
  1. RITALIN LA [Suspect]
     Active Substance: METHYLPHENIDATE HYDROCHLORIDE
     Indication: ATTENTION DEFICIT/HYPERACTIVITY DISORDER
     Dosage: 1 DF, QD
     Route: 065
     Dates: start: 201412

REACTIONS (9)
  - Aggression [Unknown]
  - Psychomotor hyperactivity [Unknown]
  - Self injurious behaviour [Recovered/Resolved]
  - Insomnia [Recovered/Resolved]
  - Vomiting [Unknown]
  - Decreased interest [Unknown]
  - Hypophagia [Unknown]
  - Depression [Recovering/Resolving]
  - Decreased appetite [Recovered/Resolved]
